FAERS Safety Report 6064726-9 (Version None)
Quarter: 2009Q1

REPORT INFORMATION
  Report Type: 
  Country: None (occurrence: None)
  Receive Date: 20090204
  Receipt Date: 20081003
  Transmission Date: 20090719
  Serious: No
  Sender: FDA-Public Use
  Company Number: A0743541A

PATIENT
  Age: 53 Year
  Sex: Male

DRUGS (3)
  1. ARIXTRA [Suspect]
     Dosage: 7.5MG PER DAY
     Route: 058
     Dates: start: 20080501
  2. UNKNOWN MEDICATION [Concomitant]
  3. FOSAMAX [Concomitant]

REACTIONS (3)
  - BLOOD TEST ABNORMAL [None]
  - HEADACHE [None]
  - PRODUCT QUALITY ISSUE [None]
